FAERS Safety Report 11165568 (Version 2)
Quarter: 2015Q2

REPORT INFORMATION
  Report Type: Not Available
  Country: FI (occurrence: FI)
  Receive Date: 20150604
  Receipt Date: 20150625
  Transmission Date: 20150821
  Serious: Yes (Hospitalization)
  Sender: FDA-Public Use
  Company Number: FI-MUNDIPHARMA DS AND PHARMACOVIGILANCE-GBR-2015-0028463

PATIENT
  Age: 62 Year
  Sex: Male

DRUGS (40)
  1. PANADOL                            /00020001/ [Concomitant]
     Dosage: 3 G, DAILY, WHEN NEEDED
     Route: 048
     Dates: start: 20130725
  2. LYRICA [Suspect]
     Active Substance: PREGABALIN
     Dosage: 225 MG, DAILY
     Route: 048
     Dates: end: 201505
  3. ISANGINA [Concomitant]
     Dosage: 50 MG, DAILY
     Route: 048
     Dates: start: 20111127
  4. EZETROL [Concomitant]
     Active Substance: EZETIMIBE
     Dosage: 10 MG, DAILY
     Route: 048
     Dates: start: 20070913
  5. PRIMASPAN [Concomitant]
     Dosage: 100 MG, DAILY
     Route: 048
     Dates: start: 20071031
  6. SOMAC [Concomitant]
     Active Substance: PANTOPRAZOLE SODIUM
     Dosage: 40 MG, DAILY
     Dates: start: 20130725
  7. SIRDALUD [Concomitant]
     Active Substance: TIZANIDINE
     Dosage: 2 MG, PRN 1-3 TIMES PER DAY DURING A FEW DAYS IF NEEDED
     Dates: start: 20150325
  8. SPESICOR DOS [Concomitant]
     Dosage: 95 MG, BID
     Route: 048
  9. TAMSULOSIN [Concomitant]
     Active Substance: TAMSULOSIN
  10. FURESIS [Concomitant]
     Active Substance: FUROSEMIDE
     Dosage: 10 MG, PRN (MAX 40 MG/DAY)
     Route: 042
  11. LYRICA [Suspect]
     Active Substance: PREGABALIN
     Indication: PAIN
     Dosage: 75 MG, BID
     Route: 048
     Dates: start: 201505
  12. KALEORID [Concomitant]
     Active Substance: POTASSIUM CHLORIDE
     Dosage: 3 G, DAILY
     Route: 048
     Dates: start: 20110405
  13. OMNIC [Concomitant]
     Active Substance: TAMSULOSIN HYDROCHLORIDE
     Dosage: 0.4 MG, DAILY
     Route: 048
     Dates: start: 20110405
  14. PANACOD [Concomitant]
     Active Substance: ACETAMINOPHEN\CODEINE PHOSPHATE
     Dosage: 1 TABLET 1-3 TIMES PER DAY IF NEEDED
     Dates: start: 20080409
  15. OMEPRAZOL RATIOPHARM [Concomitant]
     Dosage: 40 MG, DAILY
     Route: 048
  16. HYDREX                             /00022001/ [Concomitant]
     Dosage: 12.5 MG, UNK
     Dates: end: 20150513
  17. ROSUVASTATIN [Concomitant]
     Active Substance: ROSUVASTATIN
     Dosage: 40 MG, DAILY
     Dates: end: 20150513
  18. PLASMALYTE [Concomitant]
     Active Substance: ELECTROLYTES NOS
  19. COZAAR COMP [Concomitant]
     Active Substance: HYDROCHLOROTHIAZIDE\LOSARTAN POTASSIUM
     Dosage: 50/12.5, DAILY
     Dates: start: 20130725, end: 20150513
  20. PANACOD [Concomitant]
     Active Substance: ACETAMINOPHEN\CODEINE PHOSPHATE
     Dosage: 1-2 TABLETS 1-4 TIMES PER DAY WHEN NEEDED
     Dates: start: 20120625
  21. NORSPAN 5 MCG/HR DEPOTLAASTARI [Suspect]
     Active Substance: BUPRENORPHINE
     Indication: PAIN
     Dosage: UNK
     Route: 062
     Dates: start: 20150506, end: 20150513
  22. LYRICA [Suspect]
     Active Substance: PREGABALIN
     Dosage: 75 MG, BID
     Route: 048
     Dates: start: 20120704
  23. PLAVIX [Concomitant]
     Active Substance: CLOPIDOGREL BISULFATE
     Dosage: 75 MG, DAILY
     Route: 048
     Dates: start: 20130725
  24. TRADOLAN [Concomitant]
     Active Substance: TRAMADOL
     Dosage: ?-1 TABLET 1-2 TIMES PER DAY AS A WHOLE TABLET WITH THE PLENTY OF LIQUID
     Dates: start: 20130405
  25. TENOX                              /00393701/ [Concomitant]
     Dosage: 20 MG, NOCTE PRN
     Dates: start: 20130728
  26. JANUVIA [Concomitant]
     Active Substance: SITAGLIPTIN PHOSPHATE
     Dosage: 50 MG, DAILY
     Route: 048
  27. FELODIPIN [Concomitant]
     Active Substance: FELODIPINE
     Dosage: 10 MG, DAILY
  28. CRESTOR [Suspect]
     Active Substance: ROSUVASTATIN CALCIUM
     Indication: HYPERCHOLESTEROLAEMIA
     Dosage: 40 MG, DAILY
     Route: 048
     Dates: start: 20080908, end: 20150513
  29. METOHEXAL                          /00376902/ [Concomitant]
     Active Substance: METOPROLOL SUCCINATE
     Dosage: 190 MG, DAILY
     Dates: start: 20110405
  30. LANTUS [Concomitant]
     Active Substance: INSULIN GLARGINE
     Dosage: 40 IU, DAILY
     Route: 058
     Dates: start: 20071011
  31. DINIT [Concomitant]
     Active Substance: ISOSORBIDE DINITRATE
     Dosage: 1.25 MG, PRN 1-3 TIMES
     Dates: start: 20080102
  32. MIRTATSAPIINI ENNAPHARMA [Concomitant]
     Indication: INSOMNIA
     Dosage: 15 MG 1-2 X 1, WHEN NEEDED
     Dates: start: 20120803
  33. MIRTATSAPIINI ENNAPHARMA [Concomitant]
     Dosage: 7.5 MG, NOCTE PRN
     Route: 048
  34. NOVORAPID [Concomitant]
     Active Substance: INSULIN ASPART
     Dosage: 10 IU, TID
     Route: 058
     Dates: start: 20080102
  35. FINASTERID [Concomitant]
     Dosage: 5 MG, DAILY
     Route: 048
     Dates: start: 20150408
  36. LOSARTAN [Concomitant]
     Active Substance: LOSARTAN
     Dosage: UNK
     Dates: end: 20150513
  37. TRADJENTA [Concomitant]
     Active Substance: LINAGLIPTIN
     Dosage: 5 MG, DAILY
     Dates: end: 20150514
  38. OPAMOX [Concomitant]
     Dosage: 7.5 MG, PRN (MAX 30 MG/DAY)
     Route: 048
  39. PEGORION [Concomitant]
     Dosage: 12 G, PRN
     Route: 048
  40. PLENDIL [Concomitant]
     Active Substance: FELODIPINE
     Dosage: 10 MG, DAILY
     Route: 048
     Dates: start: 20110405

REACTIONS (4)
  - Muscular weakness [Recovering/Resolving]
  - Pain [Recovering/Resolving]
  - Renal impairment [Unknown]
  - Rhabdomyolysis [Recovering/Resolving]

NARRATIVE: CASE EVENT DATE: 201505
